FAERS Safety Report 11282216 (Version 2)
Quarter: 2015Q3

REPORT INFORMATION
  Report Type: Spontaneous
  Country: ZA (occurrence: ZA)
  Receive Date: 20150720
  Receipt Date: 20150806
  Transmission Date: 20151125
  Serious: Yes (Other)
  Sender: FDA-Public Use
  Company Number: ZA-AUROBINDO-AUR-APL-2015-06004

PATIENT
  Sex: Female

DRUGS (1)
  1. MEDPLOZ 10MG [Suspect]
     Active Substance: ZOLPIDEM TARTRATE
     Indication: PRODUCT USED FOR UNKNOWN INDICATION
     Dosage: 10 MG, UNK
     Route: 065

REACTIONS (3)
  - Blood glucose increased [Unknown]
  - Malaise [Unknown]
  - Coma [Unknown]
